FAERS Safety Report 18251154 (Version 1)
Quarter: 2020Q3

REPORT INFORMATION
  Report Type: Spontaneous
  Country: IT (occurrence: GB)
  Receive Date: 20200910
  Receipt Date: 20200910
  Transmission Date: 20201103
  Serious: Yes (Disabling, Other)
  Sender: FDA-Public Use
  Company Number: GB-SHANGHAI HENGRUI PHARMACEUTICAL CO., LTD.-2089574

PATIENT
  Age: 38 Year
  Sex: Female

DRUGS (4)
  1. ENFLURANE. [Suspect]
     Active Substance: ENFLURANE
  2. SEVOFLURANE USP, 100%, LIQUID FOR INHALATION [Suspect]
     Active Substance: SEVOFLURANE
  3. ISOFLURANE. [Suspect]
     Active Substance: ISOFLURANE
  4. HALOTHANE. [Suspect]
     Active Substance: HALOTHANE

REACTIONS (2)
  - Scleroderma [Not Recovered/Not Resolved]
  - Occupational exposure to product [Unknown]
